FAERS Safety Report 20445153 (Version 1)
Quarter: 2022Q1

REPORT INFORMATION
  Report Type: Spontaneous
  Country: US (occurrence: None)
  Receive Date: 20220208
  Receipt Date: 20220208
  Transmission Date: 20220423
  Serious: No
  Sender: FDA-Public Use
  Company Number: None

PATIENT
  Sex: Male

DRUGS (1)
  1. TOBRAMYCIN [Suspect]
     Active Substance: TOBRAMYCIN
     Indication: Cystic fibrosis
     Dosage: 1 AMPULE VIA NEBULIZER TWICE DAILY FOR 28 DAYS ON, THEN 28 DAYS OFF.??
     Route: 055
     Dates: start: 202101

REACTIONS (1)
  - Drug ineffective [None]
